FAERS Safety Report 7468757-3 (Version None)
Quarter: 2011Q2

REPORT INFORMATION
  Report Type: 
  Country: None (occurrence: None)
  Receive Date: 20110510
  Receipt Date: 20110428
  Transmission Date: 20111010
  Serious: No
  Sender: FDA-Public Use
  Company Number: US-BIOGENIDEC-2011BI016238

PATIENT
  Age: 31 Year
  Sex: Female

DRUGS (2)
  1. DEPO-PROVERA [Concomitant]
     Indication: CONTRACEPTION
     Dates: start: 20110101
  2. TYSABRI [Suspect]
     Indication: MULTIPLE SCLEROSIS
     Route: 042
     Dates: start: 20100324, end: 20110330

REACTIONS (4)
  - MIGRAINE [None]
  - OPTIC NEURITIS [None]
  - SYNCOPE [None]
  - MULTIPLE SCLEROSIS [None]
